FAERS Safety Report 9629220 (Version 1)
Quarter: 2013Q4

REPORT INFORMATION
  Report Type: Report from Study
  Country: CA (occurrence: CA)
  Receive Date: 20131017
  Receipt Date: 20131017
  Transmission Date: 20140711
  Serious: Yes (Hospitalization)
  Sender: FDA-Public Use
  Company Number: CA-JNJFOC-20131007025

PATIENT
  Age: 27 Year
  Sex: Male

DRUGS (14)
  1. REMICADE [Suspect]
     Indication: CROHN^S DISEASE
     Route: 042
     Dates: start: 20080807
  2. ONDANSETRON [Concomitant]
     Route: 048
  3. URSODIOL [Concomitant]
     Indication: HEPATIC ENZYME INCREASED
     Route: 048
  4. PREDNISONE [Concomitant]
     Indication: GRANULOMATOSIS WITH POLYANGIITIS
     Route: 048
  5. CALCIUM W/VITAMIN D [Concomitant]
     Indication: OSTEOPOROSIS
     Route: 048
  6. TRAZODONE [Concomitant]
     Indication: SLEEP DISORDER THERAPY
     Route: 048
  7. HYDROXYZINE [Concomitant]
     Indication: ANTIALLERGIC THERAPY
     Route: 048
  8. CIPRALEX [Concomitant]
     Indication: ANTIDEPRESSANT THERAPY
     Route: 048
  9. ASACOL [Concomitant]
     Indication: CROHN^S DISEASE
     Route: 048
  10. HYDROMORPHONE CONTIN [Concomitant]
     Indication: PAIN
     Dosage: + 1 MG FOR BREKTHROUGH
     Route: 048
  11. MIRTAZAPINE [Concomitant]
     Indication: NAUSEA
     Route: 048
  12. TECTA [Concomitant]
     Indication: GASTROOESOPHAGEAL REFLUX DISEASE
     Route: 048
  13. BOTOX [Concomitant]
     Indication: HEADACHE
     Route: 050
  14. HYCORT ENEMA [Concomitant]
     Route: 065

REACTIONS (2)
  - Hepatic lesion [Not Recovered/Not Resolved]
  - Constipation [Recovered/Resolved]
